FAERS Safety Report 21959711 (Version 1)
Quarter: 2023Q1

REPORT INFORMATION
  Report Type: Spontaneous
  Country: CA (occurrence: CA)
  Receive Date: 20230206
  Receipt Date: 20230206
  Transmission Date: 20230418
  Serious: Yes (Other)
  Sender: FDA-Public Use
  Company Number: CA-002147023-NVSC2023CA021464

PATIENT
  Age: 70 Year
  Sex: Female

DRUGS (1)
  1. ERELZI [Suspect]
     Active Substance: ETANERCEPT-SZZS
     Indication: Rheumatoid arthritis
     Dosage: 50 MG, QW (SINGLE USE)
     Route: 058

REACTIONS (3)
  - Rash vesicular [Recovered/Resolved]
  - Rash [Recovered/Resolved]
  - Intentional dose omission [Recovered/Resolved]
